FAERS Safety Report 9992431 (Version 1)
Quarter: 2014Q1

REPORT INFORMATION
  Report Type: Spontaneous
  Country: US (occurrence: US)
  Receive Date: 20140310
  Receipt Date: 20140310
  Transmission Date: 20141002
  Serious: No
  Sender: FDA-Public Use
  Company Number: US-PFIZER INC-2014068657

PATIENT
  Age: 42 Year
  Sex: Female
  Weight: 86.17 kg

DRUGS (1)
  1. RELPAX [Suspect]
     Indication: MIGRAINE
     Dosage: 10 MG, UNK
     Dates: start: 201310

REACTIONS (1)
  - Drug ineffective [Unknown]
